FAERS Safety Report 7557955-6 (Version None)
Quarter: 2011Q2

REPORT INFORMATION
  Report Type: 
  Country: None (occurrence: None)
  Receive Date: 20110620
  Receipt Date: 20110608
  Transmission Date: 20111010
  Serious: Yes (Life-Threatening, Hospitalization, Other)
  Sender: FDA-Public Use
  Company Number: B0703936B

PATIENT
  Sex: Female
  Weight: 43 kg

DRUGS (7)
  1. CHOP CHEMOTHERAPY [Suspect]
     Indication: B-CELL LYMPHOMA
     Route: 065
     Dates: start: 20110210
  2. ALLOPURINOL [Concomitant]
  3. OFATUMUMAB [Suspect]
     Indication: B-CELL LYMPHOMA
     Dosage: 1000MG PER DAY
     Route: 065
     Dates: start: 20110210
  4. DEBRIDAT [Concomitant]
     Dates: start: 20110219
  5. NEXIUM [Concomitant]
     Indication: PROPHYLAXIS
     Dates: start: 20110203
  6. SPASFON [Concomitant]
     Dates: start: 20110219
  7. DURAGESIC-100 [Concomitant]
     Dates: start: 20110203

REACTIONS (3)
  - BACTERIAL SEPSIS [None]
  - LUNG INFECTION [None]
  - RESPIRATORY DISTRESS [None]
